FAERS Safety Report 22209557 (Version 1)
Quarter: 2023Q2

REPORT INFORMATION
  Report Type: Spontaneous
  Country: DE (occurrence: DE)
  Receive Date: 20230414
  Receipt Date: 20230414
  Transmission Date: 20230722
  Serious: Yes (Hospitalization, Other)
  Sender: FDA-Public Use
  Company Number: DE-002147023-NVSC2023DE072129

PATIENT
  Age: 66 Year
  Sex: Female
  Weight: 93 kg

DRUGS (15)
  1. ENBREL [Suspect]
     Active Substance: ETANERCEPT
     Indication: Psoriatic arthropathy
     Dosage: UNK
     Route: 065
     Dates: start: 201803, end: 2018
  2. ENBREL [Suspect]
     Active Substance: ETANERCEPT
     Indication: Psoriasis
     Dosage: UNK
     Route: 065
     Dates: start: 200806, end: 200810
  3. ENBREL [Suspect]
     Active Substance: ETANERCEPT
     Indication: Nail psoriasis
     Dosage: UNK
     Route: 065
  4. METHOTREXATE SODIUM [Suspect]
     Active Substance: METHOTREXATE SODIUM
     Indication: Product used for unknown indication
     Dosage: UNK
     Route: 065
  5. METHOTREXATE SODIUM [Suspect]
     Active Substance: METHOTREXATE SODIUM
     Dosage: UNK UNK, QWK
     Route: 058
     Dates: start: 201902, end: 201907
  6. SULFASALAZINE [Suspect]
     Active Substance: SULFASALAZINE
     Indication: Psoriatic arthropathy
     Dosage: UNK
     Route: 065
  7. SULFASALAZINE [Suspect]
     Active Substance: SULFASALAZINE
     Indication: Nail psoriasis
     Dosage: UNK
     Route: 065
  8. SULFASALAZINE [Suspect]
     Active Substance: SULFASALAZINE
     Indication: Psoriasis
     Dosage: UNK
     Route: 065
  9. ERELZI [Suspect]
     Active Substance: ETANERCEPT-SZZS
     Indication: Psoriasis
     Dosage: 50 MILLIGRAM, QWK
     Route: 058
     Dates: start: 20190215
  10. ERELZI [Suspect]
     Active Substance: ETANERCEPT-SZZS
     Indication: Psoriatic arthropathy
     Dosage: UNK
     Route: 058
  11. ERELZI [Suspect]
     Active Substance: ETANERCEPT-SZZS
     Indication: Nail psoriasis
     Dosage: UNK
     Route: 058
  12. ETORICOXIB [Concomitant]
     Active Substance: ETORICOXIB
     Dosage: 90 MILLIGRAM
  13. VERAPAMIL [Concomitant]
     Active Substance: VERAPAMIL HYDROCHLORIDE
     Dosage: 240 MILLIGRAM, QD
  14. FOLIC ACID [Concomitant]
     Active Substance: FOLIC ACID
     Dosage: 5 MILLIGRAM, QWK
  15. XIPAMIDE [Concomitant]
     Active Substance: XIPAMIDE
     Dosage: 0.5 MILLIGRAM, QD

REACTIONS (45)
  - Facet joint syndrome [Unknown]
  - Polyarthritis [Unknown]
  - Psoriatic arthropathy [Recovered/Resolved]
  - Muscle twitching [Unknown]
  - Cataract [Unknown]
  - Spondylitis [Unknown]
  - Obesity [Unknown]
  - Osteochondrosis [Unknown]
  - Osteoarthritis [Unknown]
  - Pain in extremity [Unknown]
  - Back pain [Unknown]
  - Psoriasis [Recovered/Resolved]
  - Pyelonephritis [Unknown]
  - Cough [Unknown]
  - Hepatic steatosis [Unknown]
  - Oedema peripheral [Unknown]
  - Pollakiuria [Unknown]
  - Splenomegaly [Unknown]
  - Scoliosis [Unknown]
  - Flatulence [Unknown]
  - Aspartate aminotransferase increased [Unknown]
  - Blood uric acid increased [Unknown]
  - Bursitis [Unknown]
  - Bone marrow oedema [Unknown]
  - Tendon disorder [Unknown]
  - Constipation [Unknown]
  - Dysuria [Unknown]
  - Alanine aminotransferase increased [Unknown]
  - Osteopenia [Unknown]
  - Flank pain [Not Recovered/Not Resolved]
  - Dyspnoea [Unknown]
  - Musculoskeletal stiffness [Unknown]
  - Productive cough [Unknown]
  - Synovitis [Unknown]
  - Spinal osteoarthritis [Unknown]
  - Carpal tunnel syndrome [Unknown]
  - Hypertension [Unknown]
  - Interspinous osteoarthritis [Unknown]
  - Exostosis [Unknown]
  - Ulnar nerve injury [Unknown]
  - Hepatitis A antibody abnormal [Unknown]
  - Chronic obstructive pulmonary disease [Unknown]
  - Cyst [Not Recovered/Not Resolved]
  - Bone cyst [Unknown]
  - Myopathy [Unknown]

NARRATIVE: CASE EVENT DATE: 20190101
